FAERS Safety Report 25426732 (Version 1)
Quarter: 2025Q2

REPORT INFORMATION
  Report Type: Spontaneous
  Country: US (occurrence: US)
  Receive Date: 20250612
  Receipt Date: 20250612
  Transmission Date: 20250717
  Serious: No
  Sender: SANDOZ
  Company Number: US-SANDOZ-SDZ2025US040592

PATIENT
  Age: 52 Year
  Sex: Female

DRUGS (2)
  1. ADALIMUMAB [Suspect]
     Active Substance: ADALIMUMAB
     Indication: Product used for unknown indication
     Dosage: UNK, Q2W (ADALIMUMAB (ADALIMUMAB-ADAZ) 40MG INJECTION, FOR SUBCUTANEOUS USE IN PREFILLED PEN)
     Route: 058
  2. ADALIMUMAB [Suspect]
     Active Substance: ADALIMUMAB
     Indication: Product used for unknown indication
     Dosage: UNK, Q2W (ADALIMUMAB (ADALIMUMAB-ADAZ) 40MG INJECTION, FOR SUBCUTANEOUS USE IN PREFILLED PEN)
     Route: 058

REACTIONS (2)
  - Drug dose omission by device [Unknown]
  - Device defective [Unknown]
